FAERS Safety Report 14198163 (Version 1)
Quarter: 2017Q4

REPORT INFORMATION
  Report Type: Spontaneous
  Country: US (occurrence: US)
  Receive Date: 20171116
  Receipt Date: 20171116
  Transmission Date: 20180321
  Serious: Yes (Other)
  Sender: FDA-Public Use
  Company Number: None

PATIENT
  Age: 42 Year
  Sex: Female
  Weight: 78.75 kg

DRUGS (9)
  1. WELLBUTRIN [Concomitant]
     Active Substance: BUPROPION HYDROCHLORIDE
  2. TOPAMAX [Concomitant]
     Active Substance: TOPIRAMATE
  3. ANCEF [Suspect]
     Active Substance: CEFAZOLIN SODIUM
     Indication: PREOPERATIVE CARE
     Dosage: ?          QUANTITY:1 IV;?
     Route: 042
     Dates: start: 20170922, end: 20170922
  4. BIOTIN [Concomitant]
     Active Substance: BIOTIN
  5. CLONAZEPAM. [Concomitant]
     Active Substance: CLONAZEPAM
  6. MULTIVITAMIN [Concomitant]
     Active Substance: VITAMINS
  7. ANCEF [Suspect]
     Active Substance: CEFAZOLIN SODIUM
     Indication: SHOULDER OPERATION
     Dosage: ?          QUANTITY:1 IV;?
     Route: 042
     Dates: start: 20170922, end: 20170922
  8. PRISTIQ EXTENDED-RELEASE [Concomitant]
     Active Substance: DESVENLAFAXINE SUCCINATE
  9. TIZANIDINE. [Concomitant]
     Active Substance: TIZANIDINE

REACTIONS (7)
  - Feeding disorder [None]
  - Dysphagia [None]
  - Candida infection [None]
  - Drug hypersensitivity [None]
  - Fungal skin infection [None]
  - Oral candidiasis [None]
  - Therapy non-responder [None]

NARRATIVE: CASE EVENT DATE: 20170925
